FAERS Safety Report 18746837 (Version 2)
Quarter: 2022Q1

REPORT INFORMATION
  Report Type: Spontaneous
  Country: JP (occurrence: JP)
  Receive Date: 20210115
  Receipt Date: 20220224
  Transmission Date: 20220423
  Serious: Yes (Hospitalization, Other)
  Sender: FDA-Public Use
  Company Number: JP-SUN PHARMACEUTICAL INDUSTRIES LTD-2020R1-275521

PATIENT
  Age: 65 Year
  Sex: Female

DRUGS (5)
  1. DOCETAXEL [Suspect]
     Active Substance: DOCETAXEL
     Indication: Neoplasm malignant
     Dosage: UNK (TOTAL 300MG/M2)
     Route: 065
  2. DOCETAXEL [Suspect]
     Active Substance: DOCETAXEL
     Dosage: UNK (280MG/M2)
     Route: 065
  3. EPIRUBICIN [Suspect]
     Active Substance: EPIRUBICIN
     Indication: Neoplasm malignant
     Dosage: UNK (TOTAL 400MG/M2)
     Route: 065
  4. CYCLOPHOSPHAMIDE [Suspect]
     Active Substance: CYCLOPHOSPHAMIDE
     Indication: Chemotherapy
     Dosage: UNK (TOTAL 2000MG/M2)
     Route: 065
  5. TRASTUZUMAB [Suspect]
     Active Substance: TRASTUZUMAB
     Indication: Chemotherapy
     Dosage: UNK (104MG/KG)
     Route: 065

REACTIONS (4)
  - Cardiac failure acute [Unknown]
  - Cardiac dysfunction [Unknown]
  - Myocardial fibrosis [Unknown]
  - Myocardial injury [Unknown]
